FAERS Safety Report 12723314 (Version 2)
Quarter: 2016Q3

REPORT INFORMATION
  Report Type: Spontaneous
  Country: IT (occurrence: IT)
  Receive Date: 20160908
  Receipt Date: 20160919
  Transmission Date: 20161109
  Serious: Yes (Hospitalization, Other)
  Sender: FDA-Public Use
  Company Number: IT-ROCHE-1827176

PATIENT
  Age: 77 Year
  Sex: Male

DRUGS (6)
  1. METHOTREXATE. [Concomitant]
     Active Substance: METHOTREXATE
     Indication: RHEUMATOID ARTHRITIS
  2. HYDROXYQUINOLINE [Concomitant]
     Indication: RHEUMATOID ARTHRITIS
  3. METHYLPREDNISOLONE. [Concomitant]
     Active Substance: METHYLPREDNISOLONE
     Indication: RHEUMATOID ARTHRITIS
  4. IMIQUIMOD. [Concomitant]
     Active Substance: IMIQUIMOD
  5. VISMODEGIB [Suspect]
     Active Substance: VISMODEGIB
     Indication: BASAL CELL CARCINOMA
     Route: 065
     Dates: start: 201603
  6. ROTIGOTINE [Concomitant]
     Active Substance: ROTIGOTINE
     Dosage: PLASTER
     Route: 065

REACTIONS (6)
  - Muscle spasms [Unknown]
  - Duodenal perforation [Unknown]
  - Duodenal ulcer [Unknown]
  - B-cell lymphoma [Unknown]
  - Peritonitis [Unknown]
  - Alopecia [Unknown]
